FAERS Safety Report 9681259 (Version 1)
Quarter: 2013Q4

REPORT INFORMATION
  Report Type: Spontaneous
  Country: US (occurrence: None)
  Receive Date: 20131108
  Receipt Date: 20131108
  Transmission Date: 20140711
  Serious: No
  Sender: FDA-Public Use
  Company Number: None

PATIENT
  Age: 31 Year
  Sex: Male
  Weight: 97.52 kg

DRUGS (2)
  1. VIMPAT [Suspect]
     Indication: EPILEPSY
     Dosage: 1 PILL ONCE DAILY TAKEN BY MOUTH
     Route: 048
     Dates: start: 20131015, end: 20131107
  2. VIMPAT [Suspect]
     Indication: GRAND MAL CONVULSION
     Dosage: 1 PILL ONCE DAILY TAKEN BY MOUTH
     Route: 048
     Dates: start: 20131015, end: 20131107

REACTIONS (5)
  - Somnolence [None]
  - Migraine [None]
  - Anger [None]
  - Stress [None]
  - Mood swings [None]
